FAERS Safety Report 20246329 (Version 1)
Quarter: 2021Q4

REPORT INFORMATION
  Report Type: Spontaneous
  Country: US (occurrence: US)
  Receive Date: 20211229
  Receipt Date: 20211229
  Transmission Date: 20220303
  Serious: No
  Sender: FDA-Public Use
  Company Number: US-PERRIGO-21US006544

PATIENT
  Sex: Male

DRUGS (3)
  1. GUAIFENESIN [Suspect]
     Active Substance: GUAIFENESIN
     Indication: Cough
     Dosage: 600 MG, BID
     Route: 048
     Dates: start: 20210511
  2. BENZONATATE [Suspect]
     Active Substance: BENZONATATE
     Indication: Cough
     Dosage: UNKNOWN, PRN
     Route: 048
     Dates: start: 20210511, end: 202105
  3. LASIX                              /00032601/ [Concomitant]
     Indication: Fluid retention
     Dosage: UNK
     Route: 065
     Dates: start: 20210423, end: 20210512

REACTIONS (2)
  - Blood glucose increased [Recovering/Resolving]
  - Somnolence [Not Recovered/Not Resolved]

NARRATIVE: CASE EVENT DATE: 20210511
